FAERS Safety Report 14642243 (Version 1)
Quarter: 2018Q1

REPORT INFORMATION
  Report Type: Spontaneous
  Country: US (occurrence: US)
  Receive Date: 20180315
  Receipt Date: 20180315
  Transmission Date: 20180509
  Serious: Yes (Disabling)
  Sender: FDA-Public Use
  Company Number: None

PATIENT
  Age: 44 Year
  Sex: Male
  Weight: 90 kg

DRUGS (5)
  1. CIALIS [Concomitant]
     Active Substance: TADALAFIL
  2. FINASTERIDE. [Suspect]
     Active Substance: FINASTERIDE
     Indication: ANDROGENETIC ALOPECIA
  3. ZOLOFT [Concomitant]
     Active Substance: SERTRALINE HYDROCHLORIDE
  4. ADDERALL [Concomitant]
     Active Substance: AMPHETAMINE ASPARTATE\AMPHETAMINE SULFATE\DEXTROAMPHETAMINE SACCHARATE\DEXTROAMPHETAMINE SULFATE
  5. CLOMID CITRATE [Concomitant]

REACTIONS (7)
  - Depression [None]
  - Asthenia [None]
  - Anxiety [None]
  - Penis disorder [None]
  - Erectile dysfunction [None]
  - Insomnia [None]
  - Loss of libido [None]

NARRATIVE: CASE EVENT DATE: 20130301
